FAERS Safety Report 6687690-8 (Version None)
Quarter: 2010Q2

REPORT INFORMATION
  Report Type: 
  Country: None (occurrence: None)
  Receive Date: 20100419
  Receipt Date: 20100416
  Transmission Date: 20101027
  Serious: Yes (Death)
  Sender: FDA-Public Use
  Company Number: JP-BRISTOL-MYERS SQUIBB COMPANY-15013204

PATIENT
  Age: 65 Year
  Sex: Female
  Weight: 46 kg

DRUGS (8)
  1. TAXOL [Suspect]
     Indication: CERVIX CARCINOMA
     Dosage: 1 D.F:255 MG/BODY
     Route: 041
     Dates: start: 20091124, end: 20100301
  2. PARAPLATIN [Suspect]
     Indication: CERVIX CARCINOMA
     Dosage: 1 D.F:410 MG/BODY
     Route: 041
     Dates: start: 20091124, end: 20100301
  3. DEXART [Concomitant]
  4. CHLOR-TRIMETON [Concomitant]
  5. FAMOTIDINE [Concomitant]
  6. SEROTONE [Concomitant]
  7. PURSENNID [Concomitant]
     Route: 048
  8. PRIMPERAN [Concomitant]
     Route: 048

REACTIONS (2)
  - DISSEMINATED INTRAVASCULAR COAGULATION [None]
  - RENAL IMPAIRMENT [None]
